FAERS Safety Report 4516301-2 (Version None)
Quarter: 2004Q4

REPORT INFORMATION
  Report Type: 
  Country: None (occurrence: None)
  Receive Date: 20041005
  Receipt Date: 20040608
  Transmission Date: 20050328
  Serious: Yes (Other)
  Sender: FDA-Public Use
  Company Number: 04-225-0772

PATIENT
  Sex: Female
  Weight: 78.4723 kg

DRUGS (1)
  1. HALOPERIDOL DECANOATE [Suspect]
     Indication: SCHIZOPHRENIA
     Dosage: 75 MG IM Q MONTH
     Route: 030
     Dates: start: 20040504

REACTIONS (1)
  - INJECTION SITE REACTION [None]
